FAERS Safety Report 8843030 (Version 1)
Quarter: 2012Q4

REPORT INFORMATION
  Report Type: 
  Country: US (occurrence: US)
  Receive Date: 20121016
  Receipt Date: 20121016
  Transmission Date: 20130627
  Serious: Yes (Other)
  Sender: FDA-Public Use
  Company Number: US-GLAXOSMITHKLINE-A0996676A

PATIENT
  Age: 56 Year
  Sex: Male

DRUGS (3)
  1. VOTRIENT [Suspect]
     Indication: RENAL CELL CARCINOMA
     Dosage: 800MG Per day
     Route: 048
  2. CITALOPRAM [Suspect]
     Indication: PRODUCT USED FOR UNKNOWN INDICATION
     Route: 065
  3. AMLODIPINE [Concomitant]

REACTIONS (4)
  - Nausea [Recovering/Resolving]
  - Weight decreased [Recovering/Resolving]
  - Blister [Recovering/Resolving]
  - Blood pressure increased [Recovering/Resolving]
